FAERS Safety Report 4444152-6 (Version None)
Quarter: 2004Q3

REPORT INFORMATION
  Report Type: 
  Country: None (occurrence: None)
  Receive Date: 20040812
  Receipt Date: 20030919
  Transmission Date: 20050211
  Serious: Yes (Hospitalization, Other)
  Sender: FDA-Public Use
  Company Number: US_010871258

PATIENT
  Age: 74 Year
  Sex: Female
  Weight: 55 kg

DRUGS (6)
  1. HUMALOG [Suspect]
     Indication: DIABETES MELLITUS
     Dates: start: 19990101
  2. INSULIN [Suspect]
     Indication: DIABETES MELLITUS
     Dates: start: 19710101
  3. HUMULIN U [Suspect]
     Indication: DIABETES MELLITUS
  4. HUMULIN N [Suspect]
     Indication: DIABETES MELLITUS
  5. HUMULIN R [Suspect]
     Indication: DIABETES MELLITUS
  6. LANTUS [Concomitant]

REACTIONS (12)
  - ANGINA PECTORIS [None]
  - ARTHRITIS [None]
  - BLOOD GLUCOSE DECREASED [None]
  - BLOOD GLUCOSE INCREASED [None]
  - CARDIAC FAILURE CONGESTIVE [None]
  - COLON CANCER [None]
  - COLON CANCER RECURRENT [None]
  - DIFFICULTY IN WALKING [None]
  - HIP FRACTURE [None]
  - MYOCARDIAL INFARCTION [None]
  - PAIN [None]
  - RETINOPATHY [None]
